FAERS Safety Report 20349210 (Version 1)
Quarter: 2022Q1

REPORT INFORMATION
  Report Type: Spontaneous
  Country: US (occurrence: US)
  Receive Date: 20220119
  Receipt Date: 20220119
  Transmission Date: 20220424
  Serious: Yes (Death, Life-Threatening, Hospitalization, Other)
  Sender: FDA-Public Use
  Company Number: US-AMGEN-USASP2022004021

PATIENT
  Age: 70 Year
  Sex: Male

DRUGS (4)
  1. DARBEPOETIN ALFA [Suspect]
     Active Substance: DARBEPOETIN ALFA
     Indication: Anaemia
     Dosage: UNK
     Route: 065
     Dates: start: 2018
  2. CYCLOPHOSPHAMIDE [Concomitant]
     Active Substance: CYCLOPHOSPHAMIDE
     Dosage: UNK
     Dates: start: 2018
  3. BORTEZOMIB;DEXAMETHASONE [Concomitant]
     Dosage: UNK
     Dates: start: 2018
  4. LENALIDOMIDE [Concomitant]
     Active Substance: LENALIDOMIDE

REACTIONS (13)
  - Septic shock [Fatal]
  - Citrobacter bacteraemia [Fatal]
  - Spontaneous bacterial peritonitis [Fatal]
  - Cardiac failure congestive [Unknown]
  - Sickle cell anaemia with crisis [Unknown]
  - Jaundice [Unknown]
  - Hepatic fibrosis [Unknown]
  - Hepatic cirrhosis [Unknown]
  - Renal failure [Fatal]
  - Respiratory distress [Unknown]
  - Condition aggravated [Unknown]
  - Pneumonia [Unknown]
  - Fatigue [Unknown]

NARRATIVE: CASE EVENT DATE: 20190101
